FAERS Safety Report 8574293-3 (Version None)
Quarter: 2012Q3

REPORT INFORMATION
  Report Type: 
  Country: None (occurrence: None)
  Receive Date: 20120806
  Receipt Date: 20120730
  Transmission Date: 20120928
  Serious: Yes (Hospitalization)
  Sender: FDA-Public Use
  Company Number: US-B.I. PHARMACEUTICALS,INC./RIDGEFIELD-2012-BP-17173BP

PATIENT
  Age: 62 Year
  Sex: Male

DRUGS (3)
  1. SOTALOL HYDROCHLORIDE [Concomitant]
     Dates: start: 20120625
  2. LIPITOR [Concomitant]
     Dates: start: 20120625
  3. PRADAXA [Suspect]
     Indication: ATRIAL FLUTTER
     Dosage: 300 MG
     Route: 048
     Dates: start: 20120625, end: 20120701

REACTIONS (1)
  - RECTAL HAEMORRHAGE [None]
